FAERS Safety Report 6881303-8 (Version None)
Quarter: 2010Q3

REPORT INFORMATION
  Report Type: 
  Country: None (occurrence: None)
  Receive Date: 20100728
  Receipt Date: 20100721
  Transmission Date: 20110219
  Serious: Yes (Hospitalization, Disabling, Other)
  Sender: FDA-Public Use
  Company Number: US-MILLENNIUM PHARMACEUTICALS, INC.-2010-03806

PATIENT
  Sex: Male

DRUGS (15)
  1. VELCADE [Suspect]
     Indication: MULTIPLE MYELOMA
     Dosage: UNK
     Dates: start: 20100413
  2. REVLIMID [Suspect]
     Indication: MULTIPLE MYELOMA
     Dosage: 25 MG, CYCLIC
     Route: 048
     Dates: start: 20090401, end: 20090501
  3. REVLIMID [Suspect]
     Dosage: 15 MG, CYCLIC
     Route: 048
     Dates: start: 20090430, end: 20100501
  4. REVLIMID [Suspect]
     Dosage: 10 MG, CYCLIC
     Route: 048
     Dates: start: 20090520, end: 20100614
  5. MAGNESIUM [Concomitant]
     Indication: PRODUCT USED FOR UNKNOWN INDICATION
     Dosage: 4 MG, QD
  6. ZIAC                               /01166101/ [Concomitant]
     Indication: BLOOD PRESSURE
  7. FLUDARABINE PHOSPHATE [Concomitant]
     Indication: PRODUCT USED FOR UNKNOWN INDICATION
     Dosage: UNK
     Dates: start: 20100101
  8. TACROLIMUS [Concomitant]
     Indication: PRODUCT USED FOR UNKNOWN INDICATION
     Dosage: 0.5 MG, BID
     Route: 048
  9. PREDNISONE [Concomitant]
     Indication: PRODUCT USED FOR UNKNOWN INDICATION
     Dosage: 40 MG, QD
     Route: 048
  10. PREDNISONE [Concomitant]
     Dosage: 10 MG, QD
     Route: 048
  11. PREDNISONE [Concomitant]
     Dosage: 30 MG, UNK
     Route: 048
     Dates: start: 20100429
  12. LIDEX [Concomitant]
     Indication: PRODUCT USED FOR UNKNOWN INDICATION
     Dosage: UNK
  13. COMPAZINE [Concomitant]
     Indication: PRODUCT USED FOR UNKNOWN INDICATION
     Dosage: 10 MG, PRN
  14. COUMADIN [Concomitant]
     Indication: ANTICOAGULANT THERAPY
  15. VORICONAZOLE [Concomitant]
     Indication: PRODUCT USED FOR UNKNOWN INDICATION
     Dosage: 200 MG, BID
     Route: 048

REACTIONS (11)
  - DIZZINESS [None]
  - DYSPNOEA [None]
  - FALL [None]
  - FATIGUE [None]
  - ILEUS [None]
  - MYALGIA [None]
  - NEUROPATHY PERIPHERAL [None]
  - OEDEMA PERIPHERAL [None]
  - ORTHOSTATIC HYPOTENSION [None]
  - PAIN [None]
  - PYREXIA [None]
